FAERS Safety Report 24580111 (Version 1)
Quarter: 2024Q4

REPORT INFORMATION
  Report Type: Other
  Country: RO (occurrence: RO)
  Receive Date: 20241105
  Receipt Date: 20241105
  Transmission Date: 20250115
  Serious: Yes (Life-Threatening)
  Sender: B BRAUN
  Company Number: RO-B.Braun Medical Inc.-2164494

PATIENT
  Age: 70 Year
  Sex: Male

DRUGS (2)
  1. METRONIDAZOLE [Suspect]
     Active Substance: METRONIDAZOLE
     Indication: Infection
  2. PENICILLIN G [Suspect]
     Active Substance: PENICILLIN G

REACTIONS (1)
  - Drug ineffective [Unknown]
